FAERS Safety Report 23343597 (Version 3)
Quarter: 2024Q1

REPORT INFORMATION
  Report Type: Spontaneous
  Country: US (occurrence: US)
  Receive Date: 20231227
  Receipt Date: 20240228
  Transmission Date: 20240409
  Serious: No
  Sender: FDA-Public Use
  Company Number: US-PFIZER INC-PV202300205233

PATIENT
  Age: 61 Year
  Sex: Male

DRUGS (2)
  1. INLYTA [Suspect]
     Active Substance: AXITINIB
     Dosage: UNK
  2. INLYTA [Suspect]
     Active Substance: AXITINIB
     Dosage: 2 MG, 2X/DAY

REACTIONS (9)
  - Diarrhoea [Recovering/Resolving]
  - Pain [Unknown]
  - Headache [Recovered/Resolved]
  - Hyperaesthesia [Unknown]
  - Muscle spasms [Unknown]
  - Pain in extremity [Unknown]
  - Hypokinesia [Unknown]
  - Gastrooesophageal reflux disease [Recovering/Resolving]
  - Gastrointestinal disorder [Recovering/Resolving]

NARRATIVE: CASE EVENT DATE: 20240101
